FAERS Safety Report 20585095 (Version 2)
Quarter: 2022Q1

REPORT INFORMATION
  Report Type: Report from Study
  Country: JP (occurrence: JP)
  Receive Date: 20220311
  Receipt Date: 20220324
  Transmission Date: 20220423
  Serious: Yes (Hospitalization)
  Sender: FDA-Public Use
  Company Number: JP-TAKEDA-2022TJP026984

PATIENT
  Age: 34 Year
  Sex: Female
  Weight: 93.35 kg

DRUGS (11)
  1. BRENTUXIMAB VEDOTIN [Suspect]
     Active Substance: BRENTUXIMAB VEDOTIN
     Indication: Hodgkin^s disease
     Dosage: 110 MG, Q2WEEKS
     Route: 065
     Dates: start: 20220216, end: 20220216
  2. ADRIACIN [Concomitant]
     Active Substance: DOXORUBICIN HYDROCHLORIDE
     Indication: Hodgkin^s disease
     Dosage: 50 MILLIGRAM, Q2WEEKS
     Route: 065
     Dates: start: 20220216, end: 20220216
  3. EXAL 1 [Concomitant]
     Indication: Hodgkin^s disease
     Dosage: 12 MILLIGRAM, Q2WEEKS
     Route: 065
     Dates: start: 20220216, end: 20220216
  4. DACARBAZINE [Concomitant]
     Active Substance: DACARBAZINE
     Indication: Hodgkin^s disease
     Dosage: 750 MILLIGRAM, Q2WEEKS
     Route: 065
     Dates: start: 20220216, end: 20220216
  5. VONOPRAZAN FUMARATE [Concomitant]
     Active Substance: VONOPRAZAN FUMARATE
     Indication: Gastritis prophylaxis
     Dosage: 10 MILLIGRAM, QD
     Route: 048
     Dates: start: 20220210
  6. LEVOTHYROXINE SODIUM [Concomitant]
     Active Substance: LEVOTHYROXINE SODIUM
     Indication: Basedow^s disease
     Dosage: 75 MICROGRAM, BID
     Route: 048
     Dates: start: 20190614
  7. HERBALS [Concomitant]
     Active Substance: HERBALS
     Indication: Pruritus
     Dosage: 5.0 GRAM, BID
     Route: 048
     Dates: start: 20220127
  8. MAGNESIUM OXIDE [Concomitant]
     Active Substance: MAGNESIUM OXIDE
     Indication: Constipation
     Dosage: 250 MILLIGRAM, TID
     Route: 048
     Dates: start: 20220218
  9. BILASTINE [Concomitant]
     Active Substance: BILASTINE
     Indication: Pruritus
     Dosage: 20 MILLIGRAM, QD
     Route: 048
     Dates: start: 20220201
  10. CLARITIN [Concomitant]
     Active Substance: LORATADINE
     Indication: Pruritus
     Dosage: 10 MILLIGRAM, QD
     Route: 048
     Dates: start: 20220201
  11. ATARAX [Concomitant]
     Active Substance: HYDROXYZINE HYDROCHLORIDE
     Indication: Pruritus
     Dosage: 25 MILLIGRAM, TID
     Route: 048
     Dates: start: 20220201

REACTIONS (2)
  - Meningitis aseptic [Recovered/Resolved]
  - Lymphocyte count decreased [Unknown]

NARRATIVE: CASE EVENT DATE: 20220228
